FAERS Safety Report 6673531-1 (Version None)
Quarter: 2010Q1

REPORT INFORMATION
  Report Type: 
  Country: None (occurrence: None)
  Receive Date: 20100329
  Receipt Date: 20091201
  Transmission Date: 20100710
  Serious: Yes (Other)
  Sender: FDA-Public Use
  Company Number: 2009308085

PATIENT
  Age: 45 Year
  Sex: Male

DRUGS (2)
  1. GEODON [Suspect]
  2. STELAZINE [Concomitant]

REACTIONS (1)
  - MUSCLE SPASMS [None]
